FAERS Safety Report 5815512-3 (Version None)
Quarter: 2008Q3

REPORT INFORMATION
  Report Type: 
  Country: None (occurrence: None)
  Receive Date: 20080715
  Receipt Date: 20080707
  Transmission Date: 20090109
  Serious: Yes (Death, Other)
  Sender: FDA-Public Use
  Company Number: 229-21880-08070248

PATIENT
  Sex: Female

DRUGS (3)
  1. REVLIMID [Suspect]
     Indication: DRUG USE FOR UNKNOWN INDICATION
     Dosage: ORAL
     Route: 048
  2. MELPHALAN (MELPHALAN) [Concomitant]
  3. PREDNISONE TAB [Concomitant]

REACTIONS (2)
  - PANCYTOPENIA [None]
  - RASH [None]
